FAERS Safety Report 6079351-3 (Version None)
Quarter: 2009Q1

REPORT INFORMATION
  Report Type: 
  Country: None (occurrence: None)
  Receive Date: 20090216
  Receipt Date: 20090205
  Transmission Date: 20090719
  Serious: Yes (Life-Threatening, Hospitalization)
  Sender: FDA-Public Use
  Company Number: NL-WYE-G03044209

PATIENT
  Age: 71 Year
  Sex: Male
  Weight: 84 kg

DRUGS (12)
  1. TEMSIROLIMUS [Suspect]
     Indication: RENAL CELL CARCINOMA
     Dosage: 25 MG WEEKLY
     Route: 042
     Dates: start: 20081121
  2. BURINEX [Concomitant]
     Route: 048
  3. CARVEDILOL [Concomitant]
     Route: 048
  4. NITROGLYCERIN [Concomitant]
     Dosage: PATCH: 37.5 MG 12 HOURS PER DAY
  5. PANTOZOL [Concomitant]
     Dosage: UNK
  6. NIFEDIPINE [Concomitant]
  7. MONO-CEDOCARD [Concomitant]
  8. NULYTELY [Concomitant]
  9. PULMICORT-100 [Concomitant]
  10. VENTOLIN [Concomitant]
  11. ASCAL [Concomitant]
     Route: 048
  12. DILTIAZEM HCL [Suspect]
     Indication: CARDIAC DISORDER
     Dosage: 200 MG

REACTIONS (2)
  - MYOCARDIAL INFARCTION [None]
  - PNEUMONIA [None]
